FAERS Safety Report 12398008 (Version 2)
Quarter: 2016Q2

REPORT INFORMATION
  Report Type: Spontaneous
  Country: US (occurrence: US)
  Receive Date: 20160524
  Receipt Date: 20160602
  Transmission Date: 20160815
  Serious: Yes (Other)
  Sender: FDA-Public Use
  Company Number: US-CELGENEUS-USA-2016055122

PATIENT
  Sex: Female
  Weight: 59.47 kg

DRUGS (4)
  1. REVLIMID [Suspect]
     Active Substance: LENALIDOMIDE
     Dosage: 5MG-10MG
     Route: 048
     Dates: start: 20131213
  2. REVLIMID [Suspect]
     Active Substance: LENALIDOMIDE
     Indication: MYELODYSPLASTIC SYNDROME
     Route: 048
     Dates: start: 200906
  3. REVLIMID [Suspect]
     Active Substance: LENALIDOMIDE
     Dosage: 10MG-5MG
     Route: 048
     Dates: start: 200907
  4. REVLIMID [Suspect]
     Active Substance: LENALIDOMIDE
     Route: 048
     Dates: start: 201602

REACTIONS (2)
  - Peripheral swelling [Unknown]
  - Mitral valve incompetence [Unknown]

NARRATIVE: CASE EVENT DATE: 2015
